FAERS Safety Report 9398635 (Version 2)
Quarter: 2013Q3

REPORT INFORMATION
  Report Type: Spontaneous
  Country: US (occurrence: US)
  Receive Date: 20130712
  Receipt Date: 20130718
  Transmission Date: 20140515
  Serious: Yes (Other)
  Sender: FDA-Public Use
  Company Number: PHHY2013US073083

PATIENT
  Age: 13 Year
  Sex: Female

DRUGS (5)
  1. VINCRISTINE [Suspect]
     Indication: ACUTE LYMPHOCYTIC LEUKAEMIA
  2. PREDNISONE [Suspect]
     Indication: ACUTE LYMPHOCYTIC LEUKAEMIA
  3. METHOTREXATE [Suspect]
     Indication: ACUTE LYMPHOCYTIC LEUKAEMIA
     Route: 037
  4. PEGASPARGASE [Suspect]
     Indication: ACUTE LYMPHOCYTIC LEUKAEMIA
     Dosage: (1 DOSE, UNSEPCFIED DOSE)
  5. DAUNORUBICIN [Suspect]
     Indication: ACUTE LYMPHOCYTIC LEUKAEMIA

REACTIONS (6)
  - Intracranial venous sinus thrombosis [Recovered/Resolved]
  - Transverse sinus thrombosis [Recovered/Resolved]
  - Photophobia [Unknown]
  - Hemiplegia [Unknown]
  - Headache [Unknown]
  - Neurotoxicity [Unknown]
